FAERS Safety Report 9875142 (Version 1)
Quarter: 2014Q1

REPORT INFORMATION
  Report Type: Spontaneous
  Country: JP (occurrence: JP)
  Receive Date: 20140206
  Receipt Date: 20140206
  Transmission Date: 20141002
  Serious: Yes (Other)
  Sender: FDA-Public Use
  Company Number: PHHY2014JP010545

PATIENT
  Age: 69 Year
  Sex: Male

DRUGS (6)
  1. VINORELBINE [Suspect]
     Indication: CHEMOTHERAPY
     Route: 041
  2. CARBOPLATIN [Suspect]
     Indication: CHEMOTHERAPY
  3. DOCETAXEL [Suspect]
  4. CISPLATIN [Suspect]
  5. GEMCITABINE [Suspect]
     Indication: CHEMOTHERAPY
  6. PEMETREXED [Suspect]

REACTIONS (8)
  - Tumour pain [Recovered/Resolved]
  - Groin pain [Recovered/Resolved]
  - Pain in extremity [Recovered/Resolved]
  - Musculoskeletal pain [Recovered/Resolved]
  - Metastases to bone [Unknown]
  - Squamous cell carcinoma of lung [Unknown]
  - Malignant neoplasm progression [Unknown]
  - Metastases to lung [Unknown]
